FAERS Safety Report 10884245 (Version 1)
Quarter: 2015Q1

REPORT INFORMATION
  Report Type: Spontaneous
  Country: US (occurrence: None)
  Receive Date: 20150227
  Receipt Date: 20150227
  Transmission Date: 20150721
  Serious: Yes (Death)
  Sender: FDA-Public Use
  Company Number: LIT-15-0007-W

PATIENT
  Age: 07 Year
  Sex: Male

DRUGS (2)
  1. CEFTRIAXONE. [Suspect]
     Active Substance: CEFTRIAXONE
     Indication: BACTERAEMIA
     Route: 042
  2. CEFTRIAXONE. [Suspect]
     Active Substance: CEFTRIAXONE
     Indication: SEPSIS
     Route: 042

REACTIONS (13)
  - Hepatic function abnormal [None]
  - Renal impairment [None]
  - Hepatic failure [None]
  - Drug interaction [None]
  - Metabolic acidosis [None]
  - Coagulopathy [None]
  - Hepatocellular injury [None]
  - Pleural effusion [None]
  - Drug-induced liver injury [None]
  - Pyrexia [None]
  - General physical health deterioration [None]
  - Hepatomegaly [None]
  - Abdominal wall haemorrhage [None]

NARRATIVE: CASE EVENT DATE: 20140423
